FAERS Safety Report 13298633 (Version 1)
Quarter: 2017Q1

REPORT INFORMATION
  Report Type: Spontaneous
  Country: IN (occurrence: IN)
  Receive Date: 20170306
  Receipt Date: 20170306
  Transmission Date: 20170428
  Serious: Yes (Hospitalization)
  Sender: FDA-Public Use
  Company Number: IN-INGENUS PHARMACEUTICALS NJ, LLC-ING201702-000092

PATIENT
  Age: 50 Year
  Sex: Male

DRUGS (6)
  1. RETEPLASE [Suspect]
     Active Substance: RETEPLASE
  2. CARISOPRODOL AND ASPIRIN [Suspect]
     Active Substance: ASPIRIN\CARISOPRODOL
     Indication: ANTIPLATELET THERAPY
  3. TICAGRELOR [Suspect]
     Active Substance: TICAGRELOR
     Indication: ANTIPLATELET THERAPY
  4. ATORVASTATIN [Concomitant]
     Active Substance: ATORVASTATIN
  5. RETEPLASE [Suspect]
     Active Substance: RETEPLASE
     Indication: FIBRINOLYSIS
     Route: 042
  6. RETEPLASE [Suspect]
     Active Substance: RETEPLASE

REACTIONS (2)
  - Retroperitoneal haemorrhage [Recovered/Resolved]
  - Retroperitoneal haematoma [Recovered/Resolved]
